FAERS Safety Report 9399247 (Version 1)
Quarter: 2013Q3

REPORT INFORMATION
  Report Type: Spontaneous
  Country: ES (occurrence: None)
  Receive Date: 20130709
  Receipt Date: 20130709
  Transmission Date: 20140515
  Serious: Yes (Other)
  Sender: FDA-Public Use
  Company Number: 2013AP006396

PATIENT
  Age: 84 Year
  Sex: Female

DRUGS (5)
  1. MIRTAZAPINE [Suspect]
     Indication: INSOMNIA
  2. MIRTAZAPINE [Suspect]
     Indication: DEPRESSION
  3. ONDANSETRON (ONDANSETRON) [Suspect]
     Indication: NAUSEA
  4. ONDANSETRON (ONDANSETRON) [Suspect]
     Indication: VOMITING
  5. DOMPERIDONE (DOMPERIDONE) [Concomitant]

REACTIONS (4)
  - Drug interaction [None]
  - Drug interaction [None]
  - Vertigo [None]
  - Cerebellar haemorrhage [None]
